FAERS Safety Report 5060758-8 (Version None)
Quarter: 2006Q3

REPORT INFORMATION
  Report Type: 
  Country: None (occurrence: None)
  Receive Date: 20060719
  Receipt Date: 20060719
  Transmission Date: 20061208
  Serious: Yes (Hospitalization)
  Sender: FDA-Public Use
  Company Number: None

PATIENT
  Sex: Male

DRUGS (12)
  1. GLYBURIDE [Suspect]
     Indication: DIABETES MELLITUS
     Dosage: 5 MG  BID  PO
     Route: 048
  2. ASPIRIN [Concomitant]
  3. ATENOLOL [Concomitant]
  4. FELODIPINE [Concomitant]
  5. FLUNISOLIDE [Concomitant]
  6. HYDROCHLOROTHIAZIDE [Concomitant]
  7. GUAIFENESIN [Concomitant]
  8. HYDROCODONE/HOMATROPINE SYRUP [Concomitant]
  9. LISINOPRIL [Concomitant]
  10. METFORMIN [Concomitant]
  11. POTASSIUM CHLORIDE [Concomitant]
  12. OXYCODONE HCL [Concomitant]

REACTIONS (1)
  - BLOOD GLUCOSE DECREASED [None]
